FAERS Safety Report 5643078-X (Version None)
Quarter: 2008Q1

REPORT INFORMATION
  Report Type: 
  Country: None (occurrence: None)
  Receive Date: 20080227
  Receipt Date: 20080227
  Transmission Date: 20080703
  Serious: No
  Sender: FDA-Public Use
  Company Number: None

PATIENT
  Age: 53 Year
  Sex: Male
  Weight: 83.55 kg

DRUGS (1)
  1. PIROXICAM [Suspect]
     Indication: PAIN IN EXTREMITY
     Dosage: 20MG EVERY DAY PO
     Route: 048
     Dates: start: 20070705, end: 20070710

REACTIONS (1)
  - RASH PRURITIC [None]
